FAERS Safety Report 20351883 (Version 1)
Quarter: 2022Q1

REPORT INFORMATION
  Report Type: Spontaneous
  Country: US (occurrence: None)
  Receive Date: 20220119
  Receipt Date: 20220119
  Transmission Date: 20220423
  Serious: No
  Sender: FDA-Public Use
  Company Number: None

PATIENT
  Age: 64 Year
  Sex: Female

DRUGS (1)
  1. CAPECITABINE [Suspect]
     Active Substance: CAPECITABINE
     Dosage: 1450MG  OTHER ORAL?
     Route: 048
     Dates: start: 202110

REACTIONS (3)
  - Stomatitis [None]
  - Decreased appetite [None]
  - Feeding disorder [None]

NARRATIVE: CASE EVENT DATE: 20220112
